FAERS Safety Report 9353066 (Version 1)
Quarter: 2013Q2

REPORT INFORMATION
  Report Type: Spontaneous
  Country: US (occurrence: None)
  Receive Date: 20130617
  Receipt Date: 20130617
  Transmission Date: 20140414
  Serious: No
  Sender: FDA-Public Use
  Company Number: None

PATIENT
  Age: 41 Year
  Sex: Female
  Weight: 46.27 kg

DRUGS (2)
  1. LAMOTRIGIN XR 200MG [Suspect]
     Indication: CONVULSION
     Route: 048
     Dates: start: 20130514
  2. LAMOTRIGIN XR 200MG [Suspect]
     Indication: AFFECTIVE DISORDER
     Route: 048
     Dates: start: 20130514

REACTIONS (2)
  - Drug ineffective [None]
  - Laboratory test abnormal [None]
